FAERS Safety Report 10358295 (Version 3)
Quarter: 2014Q3

REPORT INFORMATION
  Report Type: Spontaneous
  Country: US (occurrence: None)
  Receive Date: 20140730
  Receipt Date: 20140829
  Transmission Date: 20150326
  Serious: Yes (Hospitalization)
  Sender: FDA-Public Use
  Company Number: UNT-2014-003620

PATIENT
  Age: 69 Year
  Sex: Female
  Weight: 83.7 kg

DRUGS (20)
  1. COUMADIN [Concomitant]
     Active Substance: WARFARIN SODIUM
  2. COUMADIN [Concomitant]
     Active Substance: WARFARIN SODIUM
  3. ALBUTEROL SULFATE (SALBUTAMOL SULFATE) [Concomitant]
     Active Substance: ALBUTEROL SULFATE
  4. NEURONTIN [Concomitant]
     Active Substance: GABAPENTIN
  5. ASPIRIN (ACETYLSALIYCYLIC ACID) [Concomitant]
  6. PREDNISONE (PREDNISONE) [Concomitant]
     Active Substance: PREDNISONE
  7. NEURONTIN [Concomitant]
     Active Substance: GABAPENTIN
  8. DIGOXIN ( DIGOXIN) [Concomitant]
  9. METOPOROLOL TARTRATE (METOPOROLOL TARTRATE) [Concomitant]
  10. SIMVASTATIN (SIMVASTATIN) [Concomitant]
     Active Substance: SIMVASTATIN
  11. OXYGEN (OXYGEN) [Concomitant]
     Active Substance: OXYGEN
  12. SITAGLIPTIN METFORMIN (METFORMIN HYDROCHLORIDE, SITAGLIPTIN PHOSPHATE) [Concomitant]
  13. LANTUS SOLOSTAR [Concomitant]
     Active Substance: INSULIN GLARGINE
  14. ALLOPURINOL (ALLOPURINOL) [Concomitant]
     Active Substance: ALLOPURINOL
  15. CHOLECALCIFEROL (COLECALCIFEROL) [Concomitant]
  16. IMDUR (ISOSORBIDE MONONITRATE) [Concomitant]
  17. FORMOTEROL FUMARATE (FORMOTEROL FUMARATE) [Concomitant]
  18. TYVASO [Suspect]
     Active Substance: TREPROSTINIL
     Indication: PULMONARY ARTERIAL HYPERTENSION
     Route: 055
     Dates: start: 20140614
  19. LEVOTHYROXINE (LEVOTHYROXINE) [Concomitant]
     Active Substance: LEVOTHYROXINE
  20. LASIX [Concomitant]
     Active Substance: FUROSEMIDE

REACTIONS (6)
  - Acute respiratory failure [None]
  - Hypoxia [None]
  - Chronic obstructive pulmonary disease [None]
  - Viral upper respiratory tract infection [None]
  - Adverse event [None]
  - Bronchitis [None]

NARRATIVE: CASE EVENT DATE: 20140624
